FAERS Safety Report 13398591 (Version 3)
Quarter: 2017Q2

REPORT INFORMATION
  Report Type: Spontaneous
  Country: US (occurrence: US)
  Receive Date: 20170403
  Receipt Date: 20170623
  Transmission Date: 20170830
  Serious: No
  Sender: FDA-Public Use
  Company Number: US-ALEXION PHARMACEUTICALS INC.-A201703197

PATIENT
  Age: 14 Year
  Sex: Female

DRUGS (4)
  1. STRENSIQ [Suspect]
     Active Substance: ASFOTASE ALFA
     Dosage: 0.4 ML, TIW
     Route: 058
  2. STRENSIQ [Suspect]
     Active Substance: ASFOTASE ALFA
     Indication: PRODUCT USED FOR UNKNOWN INDICATION
     Dosage: DAILY, SIX TIMES/WEEK
     Route: 058
     Dates: start: 20161223
  3. STRENSIQ [Suspect]
     Active Substance: ASFOTASE ALFA
     Dosage: 0.8ML, TIW
     Route: 058
     Dates: start: 201703
  4. STRENSIQ [Suspect]
     Active Substance: ASFOTASE ALFA
     Dosage: 0.4 ML, 2XWEEK
     Route: 058

REACTIONS (12)
  - Peripheral coldness [Recovered/Resolved]
  - Fatigue [Recovered/Resolved]
  - Asthenia [Unknown]
  - Dark circles under eyes [Recovered/Resolved]
  - Arthralgia [Not Recovered/Not Resolved]
  - Inappropriate schedule of drug administration [Unknown]
  - Urticaria [Recovered/Resolved]
  - Bone pain [Recovering/Resolving]
  - Contusion [Recovered/Resolved]
  - Iron deficiency [Unknown]
  - Vitamin D increased [Unknown]
  - Eosinophil count increased [Unknown]

NARRATIVE: CASE EVENT DATE: 20170402
